FAERS Safety Report 5378624-7 (Version None)
Quarter: 2007Q3

REPORT INFORMATION
  Report Type: 
  Country: None (occurrence: None)
  Receive Date: 20070702
  Receipt Date: 20070702
  Transmission Date: 20080115
  Serious: Yes (Other)
  Sender: FDA-Public Use
  Company Number: None

PATIENT
  Age: 66 Year
  Sex: Male
  Weight: 91.6266 kg

DRUGS (1)
  1. MAXIDEX [Suspect]
     Indication: CATARACT OPERATION
     Dosage: ONE DROP 4 TIME DAY INTRAOCULAR
     Route: 031
     Dates: start: 20070418, end: 20070419

REACTIONS (3)
  - BLINDNESS TRANSIENT [None]
  - POST PROCEDURAL COMPLICATION [None]
  - VISUAL ACUITY REDUCED [None]
